FAERS Safety Report 13015007 (Version 3)
Quarter: 2016Q4

REPORT INFORMATION
  Report Type: Spontaneous
  Country: IT (occurrence: IT)
  Receive Date: 20161210
  Receipt Date: 20161219
  Transmission Date: 20170207
  Serious: Yes (Hospitalization)
  Sender: FDA-Public Use
  Company Number: IT-ACCORD-046238

PATIENT
  Age: 65 Year
  Sex: Male

DRUGS (8)
  1. GARDENALE [Suspect]
     Active Substance: PHENOBARBITAL
     Dosage: STRENGTH:100 MG
     Route: 048
     Dates: start: 20140211, end: 20140211
  2. CEFOXITIN [Suspect]
     Active Substance: CEFOXITIN SODIUM
     Dosage: 10 MG
     Route: 048
     Dates: start: 20140211, end: 20140211
  3. LAMOTRIGINE. [Suspect]
     Active Substance: LAMOTRIGINE
     Dosage: 50 MG
     Route: 048
     Dates: start: 20140211, end: 20140211
  4. TICLOPIDINE [Suspect]
     Active Substance: TICLOPIDINE
     Dosage: 250 MG
     Route: 048
     Dates: start: 20140211, end: 20140211
  5. VALDORM [Suspect]
     Active Substance: VALERIAN
     Dosage: STRENGTH:30 MG
     Route: 048
     Dates: start: 20140211, end: 20140211
  6. AMISULPRIDE [Suspect]
     Active Substance: AMISULPRIDE
     Dosage: 50 MG
     Route: 048
     Dates: start: 20140211, end: 20140211
  7. QUETIAPINE ACCORD [Suspect]
     Active Substance: QUETIAPINE
     Dosage: STRENGTH:400 MG
     Route: 048
     Dates: start: 20140211, end: 20140211
  8. BARACLUDE [Suspect]
     Active Substance: ENTECAVIR
     Dosage: STRENGTH:1MG
     Route: 048
     Dates: start: 20140211, end: 20140211

REACTIONS (4)
  - Psychomotor retardation [Recovering/Resolving]
  - Intentional self-injury [Recovering/Resolving]
  - Sopor [Recovering/Resolving]
  - Drug abuse [Recovering/Resolving]

NARRATIVE: CASE EVENT DATE: 20140211
